FAERS Safety Report 5104667-4 (Version None)
Quarter: 2006Q3

REPORT INFORMATION
  Report Type: 
  Country: None (occurrence: None)
  Receive Date: 20060914
  Receipt Date: 20060912
  Transmission Date: 20061208
  Serious: Yes (Other)
  Sender: FDA-Public Use
  Company Number: US-GLAXOSMITHKLINE-A0620020A

PATIENT
  Sex: Female

DRUGS (8)
  1. NICODERM CQ [Suspect]
     Indication: SMOKING CESSATION THERAPY
     Dosage: 21MG UNKNOWN
     Route: 062
  2. AVAPRO [Concomitant]
  3. TOPROL-XL [Concomitant]
  4. ALTACE [Concomitant]
  5. KLONOPIN [Concomitant]
  6. CALCIUM PLUS D [Concomitant]
  7. XALATAN [Concomitant]
  8. ALPHAGAN P [Concomitant]

REACTIONS (8)
  - APPLICATION SITE EXCORIATION [None]
  - APPLICATION SITE PRURITUS [None]
  - APPLICATION SITE REACTION [None]
  - APPLICATION SITE ULCER [None]
  - DRUG INEFFECTIVE [None]
  - INTENTIONAL DRUG MISUSE [None]
  - PHARMACEUTICAL PRODUCT COMPLAINT [None]
  - SKIN CANCER [None]
